FAERS Safety Report 25588112 (Version 1)
Quarter: 2025Q3

REPORT INFORMATION
  Report Type: Spontaneous
  Country: US (occurrence: US)
  Receive Date: 20250722
  Receipt Date: 20250722
  Transmission Date: 20251020
  Serious: No
  Sender: ELI LILLY AND COMPANY
  Company Number: US-ELI_LILLY_AND_COMPANY-US202507017902

PATIENT
  Age: 47 Year
  Sex: Male

DRUGS (2)
  1. BASAGLAR [Suspect]
     Active Substance: INSULIN GLARGINE
     Indication: Type 2 diabetes mellitus
     Route: 065
  2. LANTUS [Suspect]
     Active Substance: INSULIN GLARGINE
     Indication: Type 2 diabetes mellitus
     Route: 065

REACTIONS (8)
  - Chest pain [Recovering/Resolving]
  - Influenza like illness [Recovering/Resolving]
  - Muscle twitching [Recovering/Resolving]
  - Vision blurred [Recovering/Resolving]
  - Blood sodium abnormal [Recovering/Resolving]
  - Muscle spasms [Recovering/Resolving]
  - Blood potassium decreased [Recovering/Resolving]
  - Pruritus [Recovering/Resolving]
